FAERS Safety Report 6832656-8 (Version None)
Quarter: 2010Q3

REPORT INFORMATION
  Report Type: 
  Country: None (occurrence: None)
  Receive Date: 20100712
  Receipt Date: 20070611
  Transmission Date: 20110219
  Serious: No
  Sender: FDA-Public Use
  Company Number: US-PFIZER INC-2007021410

PATIENT
  Sex: Female
  Weight: 108.86 kg

DRUGS (4)
  1. CHANTIX [Suspect]
     Indication: SMOKING CESSATION THERAPY
     Route: 048
     Dates: start: 20070201, end: 20070317
  2. CHANTIX [Suspect]
     Indication: NICOTINE DEPENDENCE
  3. CHONDROITIN/GLUCOSAMINE [Concomitant]
  4. GLUCOPHAGE [Concomitant]
     Dates: start: 20070203

REACTIONS (2)
  - CRYING [None]
  - IRRITABILITY [None]
